APPROVED DRUG PRODUCT: CISATRACURIUM BESYLATE
Active Ingredient: CISATRACURIUM BESYLATE
Strength: EQ 2MG BASE/ML
Dosage Form/Route: INJECTABLE;INJECTION
Application: A209144 | Product #001
Applicant: EUGIA PHARMA SPECIALITIES LTD
Approved: May 8, 2020 | RLD: No | RS: No | Type: DISCN